FAERS Safety Report 9799355 (Version 3)
Quarter: 2014Q1

REPORT INFORMATION
  Report Type: Spontaneous
  Country: FR (occurrence: FR)
  Receive Date: 20140106
  Receipt Date: 20140328
  Transmission Date: 20141002
  Serious: Yes (Hospitalization)
  Sender: FDA-Public Use
  Company Number: FR-B.I. PHARMACEUTICALS,INC./RIDGEFIELD-2014-BI-00290FF

PATIENT
  Age: 71 Year
  Sex: Male

DRUGS (2)
  1. PRADAXA [Suspect]
     Indication: PRODUCT USED FOR UNKNOWN INDICATION
     Dosage: 220 MG
     Route: 048
     Dates: start: 20130925, end: 20131008
  2. LOVENOX [Suspect]
     Indication: PRODUCT USED FOR UNKNOWN INDICATION
     Dosage: 1.6 ML
     Route: 058
     Dates: start: 20131008, end: 20131009

REACTIONS (4)
  - Deep vein thrombosis [Recovered/Resolved]
  - Haematuria [Recovered/Resolved]
  - Anaemia [Recovered/Resolved]
  - Drug ineffective [Recovered/Resolved]
